FAERS Safety Report 23245649 (Version 1)
Quarter: 2023Q4

REPORT INFORMATION
  Report Type: Spontaneous
  Country: CN (occurrence: CN)
  Receive Date: 20231130
  Receipt Date: 20231130
  Transmission Date: 20240109
  Serious: Yes (Life-Threatening, Other)
  Sender: FDA-Public Use
  Company Number: CN-DSJP-DSJ-2023-149237

PATIENT
  Age: 55 Year
  Sex: Female

DRUGS (3)
  1. ENHERTU [Suspect]
     Active Substance: FAM-TRASTUZUMAB DERUXTECAN-NXKI
     Indication: Breast neoplasm
     Dosage: 270 MG, QD
     Route: 041
     Dates: start: 20231009
  2. ENHERTU [Suspect]
     Active Substance: FAM-TRASTUZUMAB DERUXTECAN-NXKI
     Dosage: 300 MG, QD
     Route: 041
     Dates: start: 20231027, end: 20231027
  3. PYROTINIB [Concomitant]
     Active Substance: PYROTINIB
     Indication: Breast neoplasm
     Dosage: 320 MG, QD
     Route: 065
     Dates: start: 20231009

REACTIONS (1)
  - Drug-induced liver injury [Recovering/Resolving]

NARRATIVE: CASE EVENT DATE: 20231105
